FAERS Safety Report 15522263 (Version 1)
Quarter: 2018Q4

REPORT INFORMATION
  Report Type: Spontaneous
  Country: US (occurrence: US)
  Receive Date: 20181017
  Receipt Date: 20181017
  Transmission Date: 20190205
  Serious: No
  Sender: FDA-Public Use
  Company Number: US-NOVOPROD-618023

PATIENT
  Age: 55 Year
  Sex: Female
  Weight: 103.4 kg

DRUGS (2)
  1. TRESIBA [Suspect]
     Active Substance: INSULIN DEGLUDEC
     Indication: TYPE 2 DIABETES MELLITUS
     Dosage: 70 U, UNK
     Route: 058
     Dates: start: 201806
  2. NOVOLOG [Concomitant]
     Active Substance: INSULIN ASPART
     Indication: TYPE 2 DIABETES MELLITUS
     Dosage: 20 U, TID
     Dates: start: 2013

REACTIONS (2)
  - Blood glucose increased [Not Recovered/Not Resolved]
  - Device failure [Recovered/Resolved]
